FAERS Safety Report 24615016 (Version 1)
Quarter: 2024Q4

REPORT INFORMATION
  Report Type: Spontaneous
  Country: KR (occurrence: KR)
  Receive Date: 20241113
  Receipt Date: 20241113
  Transmission Date: 20250115
  Serious: Yes (Other)
  Sender: PURDUE
  Company Number: KR-NAPPMUNDI-GBR-2024-0121221

PATIENT
  Sex: Male

DRUGS (1)
  1. NORSPAN [Suspect]
     Active Substance: BUPRENORPHINE
     Indication: Neuralgia
     Dosage: 2.5 MICROGRAM PER HOUR
     Route: 062
     Dates: start: 20241104, end: 20241105

REACTIONS (4)
  - Narcolepsy [Recovered/Resolved]
  - Feeling drunk [Recovered/Resolved]
  - Off label use [Unknown]
  - Wrong technique in product usage process [Unknown]

NARRATIVE: CASE EVENT DATE: 20241104
